FAERS Safety Report 4790374-4 (Version None)
Quarter: 2005Q4

REPORT INFORMATION
  Report Type: 
  Country: None (occurrence: None)
  Receive Date: 20051005
  Receipt Date: 20050922
  Transmission Date: 20060501
  Serious: Yes (Other)
  Sender: FDA-Public Use
  Company Number: 1781-213

PATIENT
  Age: 49 Year
  Sex: Male
  Weight: 70.3075 kg

DRUGS (8)
  1. DEXAMETHASONE SODIUM POSPHATE [Suspect]
     Indication: POST PROCEDURAL NAUSEA
     Dosage: 20MG IVPB OVER 30MIN
     Dates: start: 20050921
  2. DEXAMETHASONE SODIUM POSPHATE [Suspect]
     Indication: POST PROCEDURAL VOMITING
     Dosage: 20MG IVPB OVER 30MIN
     Dates: start: 20050921
  3. KYTRIL [Concomitant]
  4. 5-FU PUMP [Concomitant]
  5. LORTAB [Concomitant]
  6. ENALAPRIL [Concomitant]
  7. AVASTIN [Concomitant]
  8. ELOXATIN [Concomitant]

REACTIONS (9)
  - ANXIETY [None]
  - BACK PAIN [None]
  - CHILLS [None]
  - CRYING [None]
  - FLUSHING [None]
  - LACRIMATION INCREASED [None]
  - PAIN [None]
  - TETANUS [None]
  - TETANY [None]
